FAERS Safety Report 4854488-2 (Version None)
Quarter: 2005Q4

REPORT INFORMATION
  Report Type: 
  Country: None (occurrence: None)
  Receive Date: 20051215
  Receipt Date: 20051202
  Transmission Date: 20060501
  Serious: Yes (Life-Threatening, Hospitalization)
  Sender: FDA-Public Use
  Company Number: JP-NOVOPROD-249044

PATIENT
  Age: 40 Year
  Sex: Male
  Weight: 70 kg

DRUGS (4)
  1. NOVOLOG [Suspect]
     Indication: DIABETES MELLITUS INSULIN-DEPENDENT
     Dosage: 25 IU, QD
     Route: 058
     Dates: start: 20020124
  2. LANTUS [Concomitant]
     Dosage: 28 IU, QD
     Dates: start: 20031217
  3. ZOLPIDEM TARTRATE [Concomitant]
     Dosage: 10 MG, QD
     Route: 048
  4. OXYGEN [Concomitant]
     Dosage: 5 L, QD

REACTIONS (4)
  - DEPRESSION [None]
  - HYPOGLYCAEMIC COMA [None]
  - INTENTIONAL OVERDOSE [None]
  - SUICIDE ATTEMPT [None]
